FAERS Safety Report 20876565 (Version 1)
Quarter: 2022Q2

REPORT INFORMATION
  Report Type: Spontaneous
  Country: DE (occurrence: DE)
  Receive Date: 20220526
  Receipt Date: 20220526
  Transmission Date: 20220721
  Serious: Yes (Hospitalization)
  Sender: FDA-Public Use
  Company Number: DE-BRISTOL-MYERS SQUIBB COMPANY-2022-042925

PATIENT
  Age: 60 Year
  Sex: Female

DRUGS (4)
  1. NIVOLUMAB [Suspect]
     Active Substance: NIVOLUMAB
     Indication: Renal cell carcinoma
     Dosage: NIVOLUMAB 3 MG/KG EVERY 3 WEEKS??3 COMBINED DOSES
     Route: 065
     Dates: start: 201906, end: 201908
  2. NIVOLUMAB [Suspect]
     Active Substance: NIVOLUMAB
     Dosage: NIVOLUMAB MONOTHERAPY IN OCTOBER 2019
     Route: 065
     Dates: start: 201910
  3. IPILIMUMAB [Suspect]
     Active Substance: IPILIMUMAB
     Indication: Renal cell carcinoma
     Dosage: IPILIMUMAB 1 MG/KG
     Route: 065
  4. PREDNISOLONE [Concomitant]
     Active Substance: PREDNISOLONE

REACTIONS (1)
  - Gastroenteritis [Unknown]
